FAERS Safety Report 10145767 (Version 1)
Quarter: 2014Q2

REPORT INFORMATION
  Report Type: Spontaneous
  Country: US (occurrence: US)
  Receive Date: 20140501
  Receipt Date: 20140501
  Transmission Date: 20141212
  Serious: No
  Sender: FDA-Public Use
  Company Number: US-ABBVIE-13P-163-1131875-00

PATIENT
  Age: 81 Year
  Sex: Female
  Weight: 72.64 kg

DRUGS (4)
  1. CREON [Suspect]
     Indication: DIARRHOEA
     Dosage: TWO TO THREE TIMES A DAY WITH MEALS
     Route: 048
     Dates: start: 201305
  2. WELCHOL [Suspect]
     Indication: DIARRHOEA
     Dates: start: 201305
  3. DIOVAN [Concomitant]
     Indication: HYPERTENSION
  4. METOPROLOL [Concomitant]
     Indication: HYPERTENSION

REACTIONS (2)
  - Cough [Not Recovered/Not Resolved]
  - Off label use [Unknown]
